FAERS Safety Report 7688768-2 (Version None)
Quarter: 2011Q3

REPORT INFORMATION
  Report Type: 
  Country: None (occurrence: None)
  Receive Date: 20110817
  Receipt Date: 20110808
  Transmission Date: 20111222
  Serious: Yes (Other)
  Sender: FDA-Public Use
  Company Number: PHHY2011PL71443

PATIENT
  Sex: Female
  Weight: 62 kg

DRUGS (3)
  1. PREDNISONE [Concomitant]
  2. METHOTREXATE [Suspect]
     Indication: RHEUMATOID ARTHRITIS
     Dosage: 25 MG, QW
     Dates: start: 20110321, end: 20110630
  3. KETOPROFEN [Concomitant]

REACTIONS (5)
  - WEIGHT DECREASED [None]
  - DIARRHOEA [None]
  - DEPRESSION [None]
  - HEADACHE [None]
  - NAUSEA [None]
